FAERS Safety Report 20046026 (Version 1)
Quarter: 2021Q4

REPORT INFORMATION
  Report Type: Spontaneous
  Country: US (occurrence: None)
  Receive Date: 20211108
  Receipt Date: 20211108
  Transmission Date: 20220303
  Serious: Yes (Hospitalization)
  Sender: FDA-Public Use
  Company Number: None

PATIENT
  Age: 71 Year
  Sex: Male
  Weight: 76.5 kg

DRUGS (11)
  1. CAPECITABINE [Suspect]
     Active Substance: CAPECITABINE
     Indication: Colon cancer
     Dosage: OTHER FREQUENCY : BID FOR 14/21 DAYS;?
     Route: 048
     Dates: start: 20211022
  2. Digox 125mcg [Concomitant]
  3. FAMOTIDINE [Concomitant]
     Active Substance: FAMOTIDINE
  4. METOPROLOL TARTRATE [Concomitant]
     Active Substance: METOPROLOL TARTRATE
  5. VITAMINS [Concomitant]
     Active Substance: VITAMINS
  6. PHENOBARBITAL [Concomitant]
     Active Substance: PHENOBARBITAL
  7. Phenytoin sodium extended 100mg [Concomitant]
  8. POTASSIUM CHLORIDE [Concomitant]
     Active Substance: POTASSIUM CHLORIDE
  9. SPIRONOLACTONE [Concomitant]
     Active Substance: SPIRONOLACTONE
  10. TRAZODONE [Concomitant]
     Active Substance: TRAZODONE HYDROCHLORIDE
  11. WARFARIN [Suspect]
     Active Substance: WARFARIN

REACTIONS (1)
  - Thrombosis [None]

NARRATIVE: CASE EVENT DATE: 20211106
